FAERS Safety Report 5038688-7 (Version None)
Quarter: 2006Q2

REPORT INFORMATION
  Report Type: 
  Country: None (occurrence: None)
  Receive Date: 20060629
  Receipt Date: 20060301
  Transmission Date: 20061013
  Serious: No
  Sender: FDA-Public Use
  Company Number: US-BRISTOL-MYERS SQUIBB COMPANY-13299094

PATIENT

DRUGS (2)
  1. REYATAZ [Suspect]
  2. RITONAVIR [Suspect]

REACTIONS (1)
  - GASTROOESOPHAGEAL REFLUX DISEASE [None]
